FAERS Safety Report 16457431 (Version 3)
Quarter: 2019Q3

REPORT INFORMATION
  Report Type: Spontaneous
  Country: US (occurrence: US)
  Receive Date: 20190620
  Receipt Date: 20190809
  Transmission Date: 20191004
  Serious: Yes (Hospitalization, Other)
  Sender: FDA-Public Use
  Company Number: US-SAOL THERAPEUTICS-2019SAO00204

PATIENT
  Sex: Female

DRUGS (24)
  1. LIORESAL [Suspect]
     Active Substance: BACLOFEN
     Indication: CEREBROVASCULAR ACCIDENT
     Dosage: 600 ?G, \DAY-FLEX
     Route: 037
     Dates: end: 20170615
  2. LIORESAL [Suspect]
     Active Substance: BACLOFEN
     Dosage: 1000 ?G, \DAY
     Route: 037
  3. LIORESAL [Suspect]
     Active Substance: BACLOFEN
     Dosage: 876.2 ?G; CURRENT DOSE AS OF 13-MAY-2019 OV
     Route: 037
     Dates: end: 20190513
  4. HYDROMORPHONE [Suspect]
     Active Substance: HYDROMORPHONE
     Route: 037
  5. DANTRIUM [Concomitant]
     Active Substance: DANTROLENE SODIUM
     Dosage: 25 MG, 3X/DAY
  6. FLEXERIL [Concomitant]
     Active Substance: CYCLOBENZAPRINE HYDROCHLORIDE
     Dosage: 10 MG, 1X/DAY
  7. LIPITOR [Concomitant]
     Active Substance: ATORVASTATIN CALCIUM
     Dosage: 40 MG, 1X/DAY
  8. LIORESAL [Suspect]
     Active Substance: BACLOFEN
     Indication: MUSCLE SPASMS
     Dosage: UNK-DOSE DECREASED D/T OVERDOSE, THEN INCREASED AGAIN
  9. OPIOIDS (UNSPECIFIED) [Suspect]
     Active Substance: UNSPECIFIED INGREDIENT
     Route: 048
  10. STOOL SOFTENER (UNSPECIFIED) [Concomitant]
     Dosage: UNK, 4X/DAY AT BEDTIME
  11. LIORESAL [Suspect]
     Active Substance: BACLOFEN
     Indication: CENTRAL PAIN SYNDROME
     Dosage: 663 ?G, \DAY
     Route: 037
     Dates: start: 20170615
  12. LIORESAL [Suspect]
     Active Substance: BACLOFEN
     Indication: MUSCLE SPASTICITY
  13. PRILOSEC [Concomitant]
     Active Substance: OMEPRAZOLE MAGNESIUM
     Dosage: UNK, 1X/DAY
  14. LIORESAL [Suspect]
     Active Substance: BACLOFEN
     Indication: MUSCLE SPASTICITY
     Dosage: UNK
     Route: 037
  15. LIORESAL [Suspect]
     Active Substance: BACLOFEN
     Indication: CEREBROVASCULAR ACCIDENT
     Dosage: 900.8 ?G, \DAY (ALSO NOTED AS 900 ?G/DAY)
     Route: 037
  16. ORAL BACLOFEN [Suspect]
     Active Substance: BACLOFEN
     Dosage: 10 MG, 3X/DAY
     Route: 048
  17. SEROQUEL [Concomitant]
     Active Substance: QUETIAPINE FUMARATE
     Dosage: 100 MG, 1X/DAY IN THE EVENING
  18. DULCOLAX NOS [Concomitant]
     Active Substance: BISACODYL OR DOCUSATE SODIUM
     Dosage: 2 DOSAGE UNITS, EVERY 48 HOURS
  19. LIORESAL [Suspect]
     Active Substance: BACLOFEN
     Dosage: 900 ?G, \DAY
     Route: 037
  20. ORAL BACLOFEN [Suspect]
     Active Substance: BACLOFEN
     Dosage: 10 MG, 2-3 TIMES DAILY AS NEEDED
     Route: 048
  21. LISINOPRIL. [Concomitant]
     Active Substance: LISINOPRIL
     Dosage: 40 MG, 1X/DAY
  22. AMLODIPINE [Concomitant]
     Active Substance: AMLODIPINE BESYLATE
     Dosage: 5 MG, 1X/DAY
  23. CYMBALTA [Concomitant]
     Active Substance: DULOXETINE HYDROCHLORIDE
     Dosage: 60 MG, 1X/DAY
  24. METHADONE [Concomitant]
     Active Substance: METHADONE HYDROCHLORIDE
     Dosage: 5 MG, 1X/DAY AT BEDTIME
     Route: 048

REACTIONS (10)
  - Muscle spasticity [Not Recovered/Not Resolved]
  - Overdose [Recovered/Resolved]
  - Muscle spasms [Unknown]
  - Knee operation [Unknown]
  - Fracture [Unknown]
  - Hypertension [Unknown]
  - Pain [Not Recovered/Not Resolved]
  - Therapy non-responder [Unknown]
  - Fall [Recovered/Resolved]
  - Depressed level of consciousness [Recovered/Resolved]
